FAERS Safety Report 19681412 (Version 1)
Quarter: 2021Q3

REPORT INFORMATION
  Report Type: Spontaneous
  Country: US (occurrence: US)
  Receive Date: 20210810
  Receipt Date: 20210810
  Transmission Date: 20211014
  Serious: Yes (Other)
  Sender: FDA-Public Use
  Company Number: US-IGSA-BIG0014091

PATIENT
  Sex: Male

DRUGS (3)
  1. COVID?19 VACCINE [Concomitant]
     Dosage: UNK
     Dates: start: 20210301, end: 20210301
  2. GAMUNEX?C [Suspect]
     Active Substance: HUMAN IMMUNOGLOBULIN G
     Indication: PRODUCT USED FOR UNKNOWN INDICATION
     Dosage: UNK
     Route: 042
     Dates: start: 20210302, end: 20210302
  3. DARATUMUMAB [Concomitant]
     Active Substance: DARATUMUMAB
     Dosage: UNK
     Route: 058
     Dates: start: 20210302

REACTIONS (6)
  - Flushing [Recovered/Resolved]
  - Feeling cold [Recovered/Resolved]
  - Angioedema [Recovered/Resolved]
  - Chills [Recovered/Resolved]
  - Pruritus genital [Recovered/Resolved]
  - Hypertension [Recovered/Resolved]

NARRATIVE: CASE EVENT DATE: 20210302
